FAERS Safety Report 24670971 (Version 1)
Quarter: 2024Q4

REPORT INFORMATION
  Report Type: Report from Study
  Country: US (occurrence: US)
  Receive Date: 20241127
  Receipt Date: 20241127
  Transmission Date: 20250114
  Serious: Yes (Other)
  Sender: UCB
  Company Number: US-UCBSA-2024060642

PATIENT
  Sex: Female
  Weight: 68 kg

DRUGS (18)
  1. ROTIGOTINE [Suspect]
     Active Substance: ROTIGOTINE
     Indication: Parkinson^s disease
     Dosage: 2 MILLIGRAM, ONCE DAILY (QD)
     Route: 062
     Dates: start: 20240425, end: 20241113
  2. TYLENOL [Concomitant]
     Active Substance: ACETAMINOPHEN
     Indication: Pain
     Dosage: 650 MILLIGRAM, EVERY 6 (SIX) HOURS
     Route: 048
  3. ALBUTEROL [Concomitant]
     Active Substance: ALBUTEROL
     Indication: Product used for unknown indication
     Dosage: 90 MICROGRAM, 2 PUFFS EVERY 6 (SIX) HOURS AS NEEDED
     Dates: start: 20241024
  4. CALCIUM ASCORBATE [Concomitant]
     Active Substance: CALCIUM ASCORBATE
     Indication: Product use in unapproved indication
     Dosage: TAKE BY MOUTH DAILY
     Route: 048
  5. LOTENSIN HCT [Concomitant]
     Active Substance: BENAZEPRIL HYDROCHLORIDE\HYDROCHLOROTHIAZIDE
     Indication: Product used for unknown indication
  6. TESSALON [Concomitant]
     Active Substance: BENZONATATE
     Indication: Sleep disorder
  7. CALCIUM CARBONATE [Concomitant]
     Active Substance: CALCIUM CARBONATE
     Indication: Product use in unapproved indication
     Dosage: 1 DOSAGE FORM
     Route: 048
  8. VITAMIN D3 [Concomitant]
     Active Substance: CHOLECALCIFEROL
     Indication: Product use in unapproved indication
     Dosage: 1 DOSAGE FORM
     Route: 048
  9. VITAMIN B12 [Concomitant]
     Active Substance: CYANOCOBALAMIN
     Indication: Product used for unknown indication
     Dosage: 1000 MICROGRAM, EV 2 WEEKS(QOW)
     Route: 048
  10. PLENDIL [Concomitant]
     Active Substance: FELODIPINE
     Indication: Product used for unknown indication
     Dosage: 2.5 MILLIGRAM, ONCE DAILY (QD)
     Route: 048
     Dates: start: 20240712
  11. PROZAC [Concomitant]
     Active Substance: FLUOXETINE HYDROCHLORIDE
     Indication: Product used for unknown indication
     Dosage: 20 MILLIGRAM, ONCE DAILY (QD)
     Route: 048
     Dates: start: 20240913
  12. FLONASE [Concomitant]
     Active Substance: FLUTICASONE PROPIONATE
     Indication: Product used for unknown indication
     Dosage: 50 MICROGRAM, INSTILL 2 SPRAYS INTO EACH NOSTRIL DAILY AS NEEDED
     Route: 045
     Dates: start: 20230212
  13. MOTRIN [Concomitant]
     Active Substance: IBUPROFEN
     Indication: Pain
     Dosage: 400 MILLIGRAM, EVERY 6 (SIX) HOURS AS NEEDED
     Route: 048
  14. ANTIVERT [Concomitant]
     Active Substance: MECLIZINE HYDROCHLORIDE
     Indication: Dizziness
     Dosage: 25 MILLIGRAM, EVERY 6 (SIX) HOURS AS NEEDED
     Route: 048
  15. GLUCOPHAGE [Concomitant]
     Active Substance: METFORMIN HYDROCHLORIDE
     Indication: Product used for unknown indication
     Dosage: 500 MILLIGRAM, 2 PO Q AM, 1 PO Q HS
     Route: 048
     Dates: start: 20180608
  16. VITAMINS NOS [Concomitant]
     Active Substance: VITAMINS
     Indication: Product use in unapproved indication
     Dosage: 1 DOSAGE FORM
     Route: 048
  17. ZOFRAN [Concomitant]
     Active Substance: ONDANSETRON HYDROCHLORIDE
     Indication: Vomiting
     Dosage: 4 MILLIGRAM, EVERY 8 (EIGHT) HOURS AS NEEDECL
     Route: 048
     Dates: start: 20220923
  18. PRILOSEC [Concomitant]
     Active Substance: OMEPRAZOLE MAGNESIUM
     Indication: Product use in unapproved indication
     Dosage: 20 MILLIGRAM, ONCE DAILY (QD)
     Route: 048
     Dates: start: 20170117

REACTIONS (8)
  - Parkinson^s disease [Unknown]
  - Deep brain stimulation [Unknown]
  - Gait disturbance [Unknown]
  - Tremor [Unknown]
  - Upper respiratory tract infection [Unknown]
  - Sleep disorder [Unknown]
  - Skin irritation [Unknown]
  - Fatigue [Unknown]

NARRATIVE: CASE EVENT DATE: 20240101
